FAERS Safety Report 7123380-5 (Version None)
Quarter: 2010Q4

REPORT INFORMATION
  Report Type: 
  Country: None (occurrence: None)
  Receive Date: 20101125
  Receipt Date: 20101118
  Transmission Date: 20110411
  Serious: No
  Sender: FDA-Public Use
  Company Number: US-BIOGENIDEC-2010BI041166

PATIENT
  Sex: Female

DRUGS (5)
  1. TYSABRI [Suspect]
     Indication: MULTIPLE SCLEROSIS
     Route: 042
     Dates: start: 20091113, end: 20100312
  2. TYSABRI [Suspect]
     Route: 042
     Dates: start: 20100714
  3. AVONEX [Concomitant]
     Indication: MULTIPLE SCLEROSIS
     Route: 030
  4. AVONEX [Concomitant]
     Route: 030
     Dates: start: 20021101, end: 20081028
  5. AVONEX [Concomitant]
     Route: 030
     Dates: start: 20021111

REACTIONS (1)
  - MEMORY IMPAIRMENT [None]
